FAERS Safety Report 6679556-4 (Version None)
Quarter: 2010Q2

REPORT INFORMATION
  Report Type: 
  Country: None (occurrence: None)
  Receive Date: 20100413
  Receipt Date: 20100407
  Transmission Date: 20101027
  Serious: Yes (Other)
  Sender: FDA-Public Use
  Company Number: PHHO2010IT03698

PATIENT
  Sex: Female

DRUGS (3)
  1. CGS 20267 T30748+TAB [Suspect]
     Indication: BREAST CANCER
     Dosage: 2.5 MG
     Route: 048
     Dates: start: 20050113, end: 20100122
  2. VITAMIN D [Concomitant]
  3. CALCIUM [Concomitant]

REACTIONS (2)
  - ANGINA PECTORIS [None]
  - ELECTROCARDIOGRAM T WAVE ABNORMAL [None]
